FAERS Safety Report 23047421 (Version 1)
Quarter: 2023Q4

REPORT INFORMATION
  Report Type: Spontaneous
  Country: US (occurrence: US)
  Receive Date: 20231010
  Receipt Date: 20231010
  Transmission Date: 20240110
  Serious: Yes (Other)
  Sender: FDA-Public Use
  Company Number: US-SA-SAC20231006001130

PATIENT
  Sex: Female

DRUGS (1)
  1. DUPIXENT [Suspect]
     Active Substance: DUPILUMAB
     Dosage: 300 MG,  OTHER
     Route: 058

REACTIONS (5)
  - Loss of consciousness [Unknown]
  - Condition aggravated [Unknown]
  - Dizziness [Unknown]
  - Injection site erythema [Unknown]
  - Injection site pruritus [Unknown]
